FAERS Safety Report 9199482 (Version 1)
Quarter: 2013Q1

REPORT INFORMATION
  Report Type: Spontaneous
  Country: US (occurrence: US)
  Receive Date: 20130329
  Receipt Date: 20130329
  Transmission Date: 20140127
  Serious: No
  Sender: FDA-Public Use
  Company Number: US-PFIZER INC-2013074786

PATIENT
  Age: 83 Year
  Sex: Female

DRUGS (2)
  1. FLECTOR [Suspect]
     Dosage: 1/2 PATCH, 1X/DAY
     Dates: end: 20130301
  2. FLECTOR [Suspect]
     Dosage: 1 PATCH QD
     Route: 061

REACTIONS (1)
  - Application site irritation [Unknown]
